FAERS Safety Report 7191950-4 (Version None)
Quarter: 2010Q4

REPORT INFORMATION
  Report Type: 
  Country: None (occurrence: None)
  Receive Date: 20101223
  Receipt Date: 20101220
  Transmission Date: 20110411
  Serious: Yes (Death, Hospitalization, Other)
  Sender: FDA-Public Use
  Company Number: IT-ROCHE-749221

PATIENT

DRUGS (2)
  1. METHOXY POLYETHYLENE GLYCOL-EPOETIN BETA [Suspect]
     Dosage: PRE-FILLED SYRINGES
     Route: 065
  2. DARBEPOETIN ALFA [Suspect]
     Dosage: DRUG REPORTED AS DARBEPOETIN
     Route: 058

REACTIONS (20)
  - ANGINA PECTORIS [None]
  - ARRHYTHMIA [None]
  - ARTHRITIS [None]
  - ATRIAL FIBRILLATION [None]
  - DIARRHOEA [None]
  - GASTRIC HAEMORRHAGE [None]
  - HYPERGLYCAEMIA [None]
  - HYPERKALAEMIA [None]
  - HYPERTENSION [None]
  - HYPOGLYCAEMIA [None]
  - HYPOTENSION [None]
  - LOWER RESPIRATORY TRACT INFECTION [None]
  - LUNG INFECTION [None]
  - NEPHROTIC SYNDROME [None]
  - PROTEINURIA [None]
  - PYELONEPHRITIS ACUTE [None]
  - RENAL FAILURE CHRONIC [None]
  - RENAL IMPAIRMENT [None]
  - URINARY TRACT INFECTION [None]
  - VOMITING [None]
